FAERS Safety Report 12094087 (Version 1)
Quarter: 2016Q1

REPORT INFORMATION
  Report Type: Spontaneous
  Country: US (occurrence: US)
  Receive Date: 20160219
  Receipt Date: 20160219
  Transmission Date: 20160526
  Serious: No
  Sender: FDA-Public Use
  Company Number: US-PFIZER INC-2016092770

PATIENT
  Age: 62 Year
  Sex: Female

DRUGS (2)
  1. LETROZOLE. [Suspect]
     Active Substance: LETROZOLE
     Dosage: UNK
  2. IBRANCE [Suspect]
     Active Substance: PALBOCICLIB
     Indication: BREAST CANCER
     Dosage: 125 MG, 1X/DAY (21 DAYS)
     Dates: start: 20151210, end: 20160202

REACTIONS (3)
  - White blood cell count decreased [Unknown]
  - Hypoaesthesia [Unknown]
  - Paraesthesia [Unknown]
